FAERS Safety Report 17273246 (Version 7)
Quarter: 2020Q4

REPORT INFORMATION
  Report Type: Spontaneous
  Country: JP (occurrence: JP)
  Receive Date: 20200115
  Receipt Date: 20201202
  Transmission Date: 20210113
  Serious: Yes (Death, Hospitalization)
  Sender: FDA-Public Use
  Company Number: JP-EISAI MEDICAL RESEARCH-EC-2020-068229

PATIENT
  Sex: Female

DRUGS (2)
  1. HALAVEN [Suspect]
     Active Substance: ERIBULIN MESYLATE
     Indication: BREAST CANCER METASTATIC
     Route: 041
     Dates: start: 20191126, end: 2019
  2. HALAVEN [Suspect]
     Active Substance: ERIBULIN MESYLATE
     Route: 041
     Dates: start: 20191221, end: 20191221

REACTIONS (7)
  - Rash [Unknown]
  - Leukopenia [Recovered/Resolved]
  - Hepatic function abnormal [Unknown]
  - Hypoaesthesia [Unknown]
  - Stomatitis [Unknown]
  - Pruritus [Unknown]
  - Hepatic cirrhosis [Unknown]

NARRATIVE: CASE EVENT DATE: 20191129
